FAERS Safety Report 25067249 (Version 1)
Quarter: 2025Q1

REPORT INFORMATION
  Report Type: Spontaneous
  Country: PL (occurrence: PL)
  Receive Date: 20250312
  Receipt Date: 20250312
  Transmission Date: 20250408
  Serious: Yes (Other)
  Sender: GILEAD
  Company Number: PL-GILEAD-2025-0705262

PATIENT
  Age: 42 Year
  Sex: Male

DRUGS (12)
  1. BIKTARVY [Suspect]
     Active Substance: BICTEGRAVIR SODIUM\EMTRICITABINE\TENOFOVIR ALAFENAMIDE FUMARATE
     Indication: HIV infection
     Dosage: 1 DOSAGE FORM, QD
     Route: 065
     Dates: start: 20230831
  2. VALGANCICLOVIR [Concomitant]
     Active Substance: VALGANCICLOVIR
     Dosage: 900 MG, QD
  3. FLUCONAZOLE [Concomitant]
     Active Substance: FLUCONAZOLE
     Dosage: 200 MG, QD
     Dates: end: 20231030
  4. COLCHICINE [Concomitant]
     Active Substance: COLCHICINE
     Dosage: 1 DOSAGE FORM, QD
     Dates: start: 20231031, end: 20231205
  5. BISOPROLOL [Concomitant]
     Active Substance: BISOPROLOL
     Dosage: 10 MG, QD
  6. PREGABALIN [Concomitant]
     Active Substance: PREGABALIN
     Dosage: 150 MG, BID
  7. PANTOPRAZOLE [Concomitant]
     Active Substance: PANTOPRAZOLE
     Dosage: 1 DOSAGE FORM, BID
     Dates: end: 20231030
  8. PROTEIN [Concomitant]
     Active Substance: PROTEIN
  9. MAGNESIUM [Concomitant]
     Active Substance: MAGNESIUM
  10. POTASSIUM [Concomitant]
     Active Substance: POTASSIUM
  11. VITAMIN D3 [Concomitant]
     Active Substance: CHOLECALCIFEROL
  12. PACLITAXEL [Concomitant]
     Active Substance: PACLITAXEL
     Dates: start: 20231115, end: 20240313

REACTIONS (3)
  - Immune reconstitution inflammatory syndrome [Unknown]
  - Hepatitis [Unknown]
  - Hypertransaminasaemia [Unknown]
